FAERS Safety Report 7511426-1 (Version None)
Quarter: 2011Q2

REPORT INFORMATION
  Report Type: 
  Country: None (occurrence: None)
  Receive Date: 20110519
  Receipt Date: 20110505
  Transmission Date: 20111010
  Serious: Yes (Hospitalization, Other)
  Sender: FDA-Public Use
  Company Number: 2011MA005446

PATIENT
  Age: 66 Year
  Sex: Female

DRUGS (2)
  1. CLONAZEPAM [Suspect]
  2. GABAPENTIN [Concomitant]

REACTIONS (26)
  - HEART RATE DECREASED [None]
  - DYSARTHRIA [None]
  - SOPOR [None]
  - MENTAL STATUS CHANGES [None]
  - CARDIOVASCULAR DISORDER [None]
  - FLAT AFFECT [None]
  - PCO2 INCREASED [None]
  - LEUKOCYTOSIS [None]
  - DISORIENTATION [None]
  - AZOTAEMIA [None]
  - SUICIDE ATTEMPT [None]
  - OXYGEN SATURATION DECREASED [None]
  - PLATELET COUNT INCREASED [None]
  - SOMNOLENCE [None]
  - ELECTROLYTE IMBALANCE [None]
  - AGITATION [None]
  - HYPOTENSION [None]
  - BLOOD SODIUM DECREASED [None]
  - NEUTROPHIL COUNT INCREASED [None]
  - SPEECH DISORDER [None]
  - MULTIPLE DRUG OVERDOSE INTENTIONAL [None]
  - PO2 DECREASED [None]
  - HYPERVIGILANCE [None]
  - CONFUSIONAL STATE [None]
  - BLOOD CHLORIDE DECREASED [None]
  - HEART SOUNDS ABNORMAL [None]
